FAERS Safety Report 6978564-3 (Version None)
Quarter: 2010Q3

REPORT INFORMATION
  Report Type: 
  Country: None (occurrence: None)
  Receive Date: 20100913
  Receipt Date: 20100908
  Transmission Date: 20110219
  Serious: Yes (Death)
  Sender: FDA-Public Use
  Company Number: JP-BAYER-201014394BYL

PATIENT
  Age: 65 Year
  Sex: Female
  Weight: 71 kg

DRUGS (6)
  1. ASPIRIN [Suspect]
     Indication: ANGINA UNSTABLE
     Dosage: TOTAL DAILY DOSE: 100 MG  UNIT DOSE: 100 MG
     Route: 048
     Dates: start: 20090718, end: 20090807
  2. CEFZON [Suspect]
     Indication: POST PROCEDURAL INFECTION
     Dosage: TOTAL DAILY DOSE: 300 MG  UNIT DOSE: 100 G
     Route: 048
     Dates: start: 20090727, end: 20090731
  3. PLAVIX [Suspect]
     Indication: ANGINA UNSTABLE
     Dosage: TOTAL DAILY DOSE: 75 MG  UNIT DOSE: 75 MG
     Route: 048
     Dates: start: 20090718, end: 20090807
  4. SIGMART [Suspect]
     Indication: ANGINA UNSTABLE
     Dosage: TOTAL DAILY DOSE: 15 MG  UNIT DOSE: 5 MG
     Route: 048
     Dates: start: 20090722, end: 20090806
  5. FAMOTIDINE [Suspect]
     Indication: GASTRITIS
     Dosage: TOTAL DAILY DOSE: 10 MG  UNIT DOSE: 10 MG
     Route: 048
     Dates: start: 20090727, end: 20090803
  6. VANCOMYCIN [Suspect]
     Indication: DEVICE RELATED INFECTION
     Dosage: 1 TIME PER 5 DAYS
     Route: 042
     Dates: start: 20090714, end: 20090806

REACTIONS (8)
  - CYTOMEGALOVIRUS ENTERITIS [None]
  - DISSEMINATED INTRAVASCULAR COAGULATION [None]
  - HISTIOCYTOSIS HAEMATOPHAGIC [None]
  - LYMPHOCYTE STIMULATION TEST POSITIVE [None]
  - MULTI-ORGAN FAILURE [None]
  - SEPTIC SHOCK [None]
  - SHOCK HAEMORRHAGIC [None]
  - TOXIC EPIDERMAL NECROLYSIS [None]
